FAERS Safety Report 6173343-1 (Version None)
Quarter: 2009Q2

REPORT INFORMATION
  Report Type: 
  Country: None (occurrence: None)
  Receive Date: 20090424
  Receipt Date: 20090108
  Transmission Date: 20091009
  Serious: No
  Sender: FDA-Public Use
  Company Number: ALL1-2009-00060

PATIENT
  Age: 9 Year
  Sex: Male
  Weight: 40.4 kg

DRUGS (4)
  1. VYVANSE [Suspect]
     Indication: ATTENTION DEFICIT/HYPERACTIVITY DISORDER
     Dosage: 20 MG, 1X/DAY:QD, ORAL ; 40 MG, 1X/DAY:QD, ORAL ; 30 MG, 1X/DAY:QD, ORAL
     Route: 048
     Dates: start: 20081201, end: 20081201
  2. VYVANSE [Suspect]
     Indication: ATTENTION DEFICIT/HYPERACTIVITY DISORDER
     Dosage: 20 MG, 1X/DAY:QD, ORAL ; 40 MG, 1X/DAY:QD, ORAL ; 30 MG, 1X/DAY:QD, ORAL
     Route: 048
     Dates: start: 20081201, end: 20081201
  3. VYVANSE [Suspect]
     Indication: ATTENTION DEFICIT/HYPERACTIVITY DISORDER
     Dosage: 20 MG, 1X/DAY:QD, ORAL ; 40 MG, 1X/DAY:QD, ORAL ; 30 MG, 1X/DAY:QD, ORAL
     Route: 048
     Dates: start: 20081201, end: 20090108
  4. PREVACID [Concomitant]

REACTIONS (3)
  - ABDOMINAL PAIN [None]
  - MUCOUS STOOLS [None]
  - WEIGHT DECREASED [None]
